FAERS Safety Report 21974568 (Version 2)
Quarter: 2023Q1

REPORT INFORMATION
  Report Type: Spontaneous
  Country: FR (occurrence: FR)
  Receive Date: 20230209
  Receipt Date: 20230224
  Transmission Date: 20230418
  Serious: Yes (Hospitalization)
  Sender: FDA-Public Use
  Company Number: FR-TEVA-2023-FR-2852735

PATIENT
  Age: 46 Year
  Sex: Female
  Weight: 70 kg

DRUGS (1)
  1. GLIMEPIRIDE [Suspect]
     Active Substance: GLIMEPIRIDE
     Indication: Overdose
     Dosage: 45 MG
     Route: 048

REACTIONS (9)
  - Hypoglycaemia [Recovered/Resolved]
  - Coma [Recovered/Resolved]
  - Mydriasis [Unknown]
  - Seizure [Unknown]
  - Vomiting [Unknown]
  - Agitation [Unknown]
  - Toxicity to various agents [Recovering/Resolving]
  - Overdose [Unknown]
  - Prescription drug used without a prescription [Unknown]
